FAERS Safety Report 13384906 (Version 1)
Quarter: 2017Q1

REPORT INFORMATION
  Report Type: Spontaneous
  Country: US (occurrence: US)
  Receive Date: 20170329
  Receipt Date: 20170329
  Transmission Date: 20170429
  Serious: Yes (Other)
  Sender: FDA-Public Use
  Company Number: US-PFIZER INC-2017128228

PATIENT
  Sex: Male

DRUGS (1)
  1. XELJANZ XR [Suspect]
     Active Substance: TOFACITINIB CITRATE
     Dosage: 11 MG, DAILY

REACTIONS (12)
  - Exostosis [Unknown]
  - Cyst [Unknown]
  - Ankle deformity [Unknown]
  - Erythema [Unknown]
  - Foot deformity [Unknown]
  - Arthralgia [Unknown]
  - Pain in extremity [Unknown]
  - Synovitis [Unknown]
  - Tendon rupture [Unknown]
  - Condition aggravated [Unknown]
  - Respiratory tract infection [Unknown]
  - Joint swelling [Unknown]

NARRATIVE: CASE EVENT DATE: 2016
